FAERS Safety Report 5265373-9 (Version None)
Quarter: 2007Q1

REPORT INFORMATION
  Report Type: 
  Country: None (occurrence: None)
  Receive Date: 20070314
  Receipt Date: 20070302
  Transmission Date: 20070707
  Serious: Yes (Hospitalization)
  Sender: FDA-Public Use
  Company Number: IT-PFIZER INC-2007017351

PATIENT
  Sex: Female
  Weight: 76 kg

DRUGS (5)
  1. SU-011,248 [Suspect]
     Route: 048
     Dates: start: 20051107, end: 20061114
  2. SU-011,248 [Suspect]
     Dosage: DAILY DOSE:37.5MG-TEXT:25+12.5 MG
     Route: 048
  3. EUTIROX [Concomitant]
     Route: 048
  4. PARIET [Concomitant]
     Route: 048
  5. CO-EFFERALGAN [Concomitant]
     Route: 048

REACTIONS (2)
  - DYSPNOEA [None]
  - EJECTION FRACTION DECREASED [None]
